FAERS Safety Report 9502635 (Version 2)
Quarter: 2013Q4

REPORT INFORMATION
  Report Type: Spontaneous
  Country: GB (occurrence: GB)
  Receive Date: 20130906
  Receipt Date: 20131213
  Transmission Date: 20140711
  Serious: Yes (Hospitalization, Other)
  Sender: FDA-Public Use
  Company Number: GB-ACCORD-019188

PATIENT
  Age: 69 Year
  Sex: Male

DRUGS (4)
  1. ALLOPURINOL [Suspect]
     Indication: GOUT
     Route: 048
     Dates: start: 20130703, end: 20130808
  2. CLARITHROMYCIN [Concomitant]
  3. COLCHICINE [Concomitant]
  4. ARCOXIA [Concomitant]
     Indication: GOUT
     Route: 048
     Dates: start: 20130705, end: 20130802

REACTIONS (2)
  - Hepatitis [Recovering/Resolving]
  - Rash [Not Recovered/Not Resolved]
